FAERS Safety Report 8632612 (Version 3)
Quarter: 2013Q1

REPORT INFORMATION
  Report Type: Report from Study
  Country: JP (occurrence: JP)
  Receive Date: 20120625
  Receipt Date: 20130329
  Transmission Date: 20140127
  Serious: Yes (Death, Hospitalization)
  Sender: FDA-Public Use
  Company Number: JP-PFIZER INC-2012132813

PATIENT
  Age: 76 Year
  Sex: Male
  Weight: 51.5 kg

DRUGS (15)
  1. CRIZOTINIB [Suspect]
     Indication: NON-SMALL CELL LUNG CANCER
     Dosage: 250 MG, 2X/DAY
     Route: 048
     Dates: start: 20120528, end: 20120531
  2. PEMETREXED [Suspect]
     Indication: NON-SMALL CELL LUNG CANCER
     Dosage: UNK
     Route: 042
     Dates: start: 20120105, end: 20120412
  3. CARBOPLATIN [Suspect]
     Indication: NON-SMALL CELL LUNG CANCER
     Dosage: UNK
     Route: 042
     Dates: start: 20120105, end: 20120412
  4. SERENACE [Suspect]
     Indication: DELIRIUM
     Dosage: 1.5 MG, 1X/DAY
     Route: 048
     Dates: start: 20120529, end: 20120531
  5. HALOPERIDOL [Suspect]
     Indication: DELIRIUM
     Dosage: 5 MG, 1X/DAY
     Route: 042
     Dates: start: 20120531
  6. TAMSULOSIN HYDROCHLORIDE [Concomitant]
     Indication: BENIGN PROSTATIC HYPERPLASIA
     Dosage: 0.2 MG, 1X/DAY
     Route: 048
  7. DIOVAN (VALSARTAN) [Concomitant]
     Indication: HYPERTENSION
     Dosage: 80 MG, 1X/DAY
     Route: 048
     Dates: start: 20120120
  8. LOXOPROFEN [Concomitant]
     Indication: CANCER PAIN
     Dosage: 60 MG, 3X/DAY
     Route: 048
  9. PROTECADIN [Concomitant]
     Indication: GASTRITIS PROPHYLAXIS
     Dosage: 10 MG, 2X/DAY
     Route: 048
     Dates: start: 20120106
  10. S. ADCHNON [Concomitant]
     Indication: HAEMOPTYSIS
     Dosage: 30 MG, 2X/DAY
     Route: 048
     Dates: start: 20111220
  11. TRANSAMIN [Concomitant]
     Indication: HAEMOPTYSIS
     Dosage: 250 MG, 2X/DAY
     Route: 048
     Dates: start: 20111220
  12. MAGMITT [Concomitant]
     Indication: CONSTIPATION
     Dosage: 330 MG, 1X/DAY
     Route: 048
     Dates: start: 20120108
  13. OXYCODONE [Concomitant]
     Indication: CANCER PAIN
     Dosage: 15 MG, 2X/DAY
     Route: 048
     Dates: start: 20120214
  14. SENNOSIDE A+B [Concomitant]
     Indication: CONSTIPATION
     Dosage: 12 MG, 1X/DAY
     Route: 048
     Dates: start: 20120108
  15. OXINORM (OXYCODONE HYDROCHLORIDE) [Concomitant]
     Indication: CANCER PAIN
     Dosage: 10 MG, AS NEEDED
     Route: 048
     Dates: start: 20120214

REACTIONS (2)
  - Pneumonitis [Fatal]
  - Delirium [Not Recovered/Not Resolved]
